FAERS Safety Report 13721711 (Version 1)
Quarter: 2017Q3

REPORT INFORMATION
  Report Type: Spontaneous
  Country: US (occurrence: US)
  Receive Date: 20170706
  Receipt Date: 20170706
  Transmission Date: 20171127
  Serious: No
  Sender: FDA-Public Use
  Company Number: US-PFIZER INC-2017256594

PATIENT
  Age: 63 Year
  Sex: Female

DRUGS (2)
  1. EUCRISA [Suspect]
     Active Substance: CRISABOROLE
     Indication: ILL-DEFINED DISORDER
  2. EUCRISA [Suspect]
     Active Substance: CRISABOROLE
     Indication: PSORIASIS
     Dosage: UNK, 2X/DAY (APPLY TO AFFECTED AREAS TWICE A DAY)
     Dates: start: 20170601

REACTIONS (1)
  - Drug ineffective for unapproved indication [Unknown]
